FAERS Safety Report 12469092 (Version 3)
Quarter: 2016Q3

REPORT INFORMATION
  Report Type: Report from Study
  Country: JP (occurrence: JP)
  Receive Date: 20160615
  Receipt Date: 20160720
  Transmission Date: 20161109
  Serious: Yes (Hospitalization, Other)
  Sender: FDA-Public Use
  Company Number: JP-PFIZER INC-2016293877

PATIENT
  Age: 24 Year
  Sex: Male
  Weight: 71 kg

DRUGS (15)
  1. ZADITEN [Concomitant]
     Active Substance: KETOTIFEN FUMARATE
     Indication: SEASONAL ALLERGY
     Dosage: UNK UNK, AS NEEDED
     Route: 047
     Dates: start: 20150615
  2. ROPION [Concomitant]
     Active Substance: FLURBIPROFEN AXETIL
     Indication: ANAL ABSCESS
     Dosage: UNK
     Route: 042
     Dates: start: 20160606, end: 20160606
  3. TOFACITINIB CITRATE [Suspect]
     Active Substance: TOFACITINIB CITRATE
     Indication: COLITIS ULCERATIVE
     Dosage: 5 MG, 2X/DAY
     Route: 048
     Dates: start: 20140131, end: 20160606
  4. TALION /01587402/ [Concomitant]
     Active Substance: BEPOTASTINE
     Indication: SEASONAL ALLERGY
     Dosage: 10 MG, 2X/DAY
     Route: 048
     Dates: start: 20150615
  5. TOKISHAKUYAKUSAN /08000701/ [Concomitant]
     Indication: HAEMORRHOIDS
     Dosage: UNK
     Dates: start: 20160509, end: 20160523
  6. SOLDEM 3A [Concomitant]
     Active Substance: CARBOHYDRATES\POTASSIUM CHLORIDE\SODIUM CHLORIDE\SODIUM LACTATE
     Indication: INFUSION
     Dosage: UNK
     Dates: start: 20160606, end: 20160606
  7. TRIBENOSIDE [Concomitant]
     Active Substance: TRIBENOSIDE
     Indication: HAEMORRHOIDS
     Dosage: UNK
     Dates: start: 20160509, end: 20160605
  8. BRUFEN [Concomitant]
     Active Substance: IBUPROFEN
     Indication: ANAL ABSCESS
     Dosage: 200 MG, 3X/DAY
     Route: 048
     Dates: start: 20160606
  9. ENTERONON-R [Concomitant]
     Active Substance: PROBIOTICS NOS
     Indication: ANAL ABSCESS
     Dosage: 1 G, 3X/DAY
     Route: 048
     Dates: start: 20160606
  10. ROXITHROMYCIN [Concomitant]
     Active Substance: ROXITHROMYCIN
     Indication: HAEMORRHOIDS
     Dosage: UNK
     Dates: start: 20160524, end: 20160531
  11. SOLDEM 3A [Concomitant]
     Active Substance: CARBOHYDRATES\POTASSIUM CHLORIDE\SODIUM CHLORIDE\SODIUM LACTATE
     Dosage: UNK
     Dates: start: 20160608, end: 20160608
  12. MIYA-BM [Concomitant]
     Active Substance: CLOSTRIDIUM BUTYRICUM SPORES STRAIN M-55
     Indication: COLITIS ULCERATIVE
     Dosage: 1 DF, 3X/DAY
     Route: 048
     Dates: start: 20111219
  13. ASACOL [Concomitant]
     Active Substance: MESALAMINE
     Indication: COLITIS ULCERATIVE
     Dosage: 1200 MG, 3X/DAY
     Route: 048
     Dates: start: 20111219
  14. RABEPRAZOLE SODIUM. [Concomitant]
     Active Substance: RABEPRAZOLE SODIUM
     Indication: GASTRITIS PROPHYLAXIS
     Dosage: 10 MG, 1X/DAY
     Route: 048
     Dates: start: 20111219
  15. CRAVIT [Concomitant]
     Active Substance: LEVOFLOXACIN
     Indication: ANAL ABSCESS
     Dosage: 500 MG, 1X/DAY
     Route: 048
     Dates: start: 20160606

REACTIONS (3)
  - Condition aggravated [Recovered/Resolved]
  - Myocarditis [Recovered/Resolved]
  - Colitis ulcerative [Recovered/Resolved]

NARRATIVE: CASE EVENT DATE: 20160605
